FAERS Safety Report 15839565 (Version 1)
Quarter: 2019Q1

REPORT INFORMATION
  Report Type: Spontaneous
  Country: US (occurrence: US)
  Receive Date: 20190117
  Receipt Date: 20190117
  Transmission Date: 20190417
  Serious: Yes (Other)
  Sender: FDA-Public Use
  Company Number: US-REGENERON PHARMACEUTICALS, INC.-2018-15194

PATIENT

DRUGS (2)
  1. EYLEA [Suspect]
     Active Substance: AFLIBERCEPT
     Dosage: 2 MG, RIGHT EYE (OD), EVERY 6-7 WEEKS
     Route: 031
     Dates: start: 20180209, end: 20180209
  2. EYLEA [Suspect]
     Active Substance: AFLIBERCEPT
     Indication: CHOROIDAL NEOVASCULARISATION
     Dosage: 2 MG, RIGHT EYE (OD), EVERY 6-7 WEEKS
     Route: 031
     Dates: start: 2014

REACTIONS (2)
  - Vitritis [Unknown]
  - Visual impairment [Unknown]

NARRATIVE: CASE EVENT DATE: 20180213
